FAERS Safety Report 19111818 (Version 1)
Quarter: 2021Q2

REPORT INFORMATION
  Report Type: Spontaneous
  Country: US (occurrence: US)
  Receive Date: 20210408
  Receipt Date: 20210408
  Transmission Date: 20210717
  Serious: No
  Sender: FDA-Public Use
  Company Number: US-SA-2021SA102872

PATIENT
  Sex: Female

DRUGS (1)
  1. LANTUS SOLOSTAR [Suspect]
     Active Substance: INSULIN GLARGINE
     Indication: TYPE 1 DIABETES MELLITUS
     Dosage: 20 IU, QD

REACTIONS (6)
  - Injection site pain [Unknown]
  - Nausea [Unknown]
  - Visual impairment [Unknown]
  - Product dose omission issue [Unknown]
  - Malaise [Unknown]
  - Tremor [Unknown]
